FAERS Safety Report 18444330 (Version 3)
Quarter: 2021Q1

REPORT INFORMATION
  Report Type: Report from Study
  Country: BR (occurrence: BR)
  Receive Date: 20201030
  Receipt Date: 20210104
  Transmission Date: 20210419
  Serious: Yes (Other)
  Sender: FDA-Public Use
  Company Number: BR-BIOGEN-2020BI00940149

PATIENT
  Age: 59 Year
  Sex: Female

DRUGS (3)
  1. HYDROXYZINE DICHLORHYDRATE [Suspect]
     Active Substance: HYDROXYZINE HYDROCHLORIDE
     Indication: HERPES OPHTHALMIC
     Route: 065
     Dates: start: 20201003, end: 20201018
  2. TYSABRI [Suspect]
     Active Substance: NATALIZUMAB
     Indication: MULTIPLE SCLEROSIS
     Route: 042
     Dates: start: 20200104
  3. RIVOTRIL [Concomitant]
     Active Substance: CLONAZEPAM
     Indication: INSOMNIA
     Route: 065
     Dates: start: 2015

REACTIONS (4)
  - Herpes ophthalmic [Recovered/Resolved]
  - Device failure [Recovered/Resolved]
  - Conjunctivitis [Recovered/Resolved]
  - Nausea [Recovered/Resolved]

NARRATIVE: CASE EVENT DATE: 202007
